FAERS Safety Report 21935102 (Version 1)
Quarter: 2023Q1

REPORT INFORMATION
  Report Type: Spontaneous
  Country: US (occurrence: US)
  Receive Date: 20230201
  Receipt Date: 20230201
  Transmission Date: 20230418
  Serious: Yes (Other)
  Sender: FDA-Public Use
  Company Number: US-ORGANON-O2301USA002754

PATIENT
  Age: 25 Year
  Sex: Female
  Weight: 52.154 kg

DRUGS (1)
  1. NEXPLANON [Suspect]
     Active Substance: ETONOGESTREL
     Indication: Contraception
     Dosage: 1 IMPLANT IN LEFT ARM FOR 5 YEARS
     Route: 059
     Dates: start: 20190517

REACTIONS (4)
  - Heavy menstrual bleeding [Not Recovered/Not Resolved]
  - Polymenorrhoea [Not Recovered/Not Resolved]
  - Incorrect product administration duration [Unknown]
  - Product prescribing error [Unknown]

NARRATIVE: CASE EVENT DATE: 20190517
